FAERS Safety Report 19422121 (Version 1)
Quarter: 2021Q2

REPORT INFORMATION
  Report Type: Spontaneous
  Country: US (occurrence: US)
  Receive Date: 20210614
  Receipt Date: 20210614
  Transmission Date: 20210717
  Serious: Yes (Life-Threatening)
  Sender: FDA-Public Use
  Company Number: None

PATIENT
  Age: 55 Year
  Sex: Female

DRUGS (5)
  1. LIPITOR [Concomitant]
     Active Substance: ATORVASTATIN CALCIUM
  2. ATENOLOL. [Concomitant]
     Active Substance: ATENOLOL
  3. THYMOSIN [Suspect]
     Active Substance: THYMOSIN
     Dates: start: 20210320, end: 20210329
  4. IBUPROFEN. [Concomitant]
     Active Substance: IBUPROFEN
  5. BPC?157. [Suspect]
     Active Substance: BPC-157

REACTIONS (3)
  - Injection site swelling [None]
  - Product sterility lacking [None]
  - Injection site erythema [None]

NARRATIVE: CASE EVENT DATE: 20210329
